FAERS Safety Report 18419075 (Version 1)
Quarter: 2020Q4

REPORT INFORMATION
  Report Type: Spontaneous
  Country: SE (occurrence: SE)
  Receive Date: 20201023
  Receipt Date: 20201023
  Transmission Date: 20210114
  Serious: Yes (Hospitalization)
  Sender: FDA-Public Use
  Company Number: SE-ADVANZ PHARMA-202010009444

PATIENT

DRUGS (1)
  1. ALITRETINOIN [Suspect]
     Active Substance: ALITRETINOIN
     Indication: ECZEMA
     Dosage: 30 MG, QD, KAPSEL, MJUK
     Route: 048
     Dates: start: 20200826, end: 20200826

REACTIONS (1)
  - Headache [Recovered/Resolved]

NARRATIVE: CASE EVENT DATE: 20200826
